FAERS Safety Report 6384256-4 (Version None)
Quarter: 2009Q4

REPORT INFORMATION
  Report Type: 
  Country: None (occurrence: None)
  Receive Date: 20091001
  Receipt Date: 20090918
  Transmission Date: 20100525
  Serious: Yes (Other)
  Sender: FDA-Public Use
  Company Number: US-PFIZER INC-2009272826

PATIENT
  Sex: Female
  Weight: 62.132 kg

DRUGS (6)
  1. ZOLOFT [Suspect]
     Indication: AFFECT LABILITY
     Dosage: 100 MG DAILY
  2. NEBIVOLOL [Suspect]
     Dosage: UNK
     Dates: start: 20090901
  3. KEPPRA [Concomitant]
  4. LAMICTAL [Concomitant]
  5. ZANAFLEX [Concomitant]
  6. PROTONIX [Concomitant]

REACTIONS (11)
  - ASTHENIA [None]
  - BLOOD PRESSURE INCREASED [None]
  - COLD SWEAT [None]
  - DRUG INTERACTION [None]
  - FALL [None]
  - HEART RATE DECREASED [None]
  - HYPOTENSION [None]
  - JOINT INJURY [None]
  - NAUSEA [None]
  - PALLOR [None]
  - PRESYNCOPE [None]
